FAERS Safety Report 8830174 (Version 1)
Quarter: 2012Q4

REPORT INFORMATION
  Report Type: Spontaneous
  Country: US (occurrence: None)
  Receive Date: 20121004
  Receipt Date: 20121004
  Transmission Date: 20130627
  Serious: Yes (Hospitalization, Other)
  Sender: FDA-Public Use
  Company Number: AUR-APL-2012-04229

PATIENT
  Age: 40 Year
  Sex: Female
  Weight: 142.4 kg

DRUGS (7)
  1. LISINOPRIL [Suspect]
     Indication: HYPERTENSION
     Route: 048
     Dates: start: 2012, end: 20120913
  2. LISINOPRIL [Suspect]
     Indication: HYPERTENSION
     Dosage: 5 mg (5 mg, 1 in 1 D), Oral
  3. PLACEBO [Suspect]
     Route: 048
     Dates: start: 20120620, end: 20120913
  4. PLACEBO [Suspect]
     Dosage: 10 mg (5 mg, 2 in 1 D), oral
  5. TRIAMTERENE (TRIAMTERENE) [Concomitant]
  6. ESCITALOPRAM (ESCITALOPRAM) [Concomitant]
  7. FEXOFENADINE (FEXFENADINE) [Concomitant]

REACTIONS (12)
  - Syncope [None]
  - Hypotension [None]
  - Blood sodium decreased [None]
  - Blood potassium decreased [None]
  - Blood glucose increased [None]
  - Blood albumin decreased [None]
  - Electrocardiogram T wave abnormal [None]
  - Cardiomegaly [None]
  - Myocardial ischaemia [None]
  - Blood calcium decreased [None]
  - Haemoglobin decreased [None]
  - Haematocrit decreased [None]
